FAERS Safety Report 4773390-8 (Version None)
Quarter: 2005Q3

REPORT INFORMATION
  Report Type: 
  Country: None (occurrence: None)
  Receive Date: 20050920
  Receipt Date: 20050824
  Transmission Date: 20060218
  Serious: Yes (Other)
  Sender: FDA-Public Use
  Company Number: DE-BRISTOL-MYERS SQUIBB COMPANY-13114913

PATIENT

DRUGS (6)
  1. IFOSFAMIDE [Suspect]
     Indication: GLIOMA
     Route: 042
  2. ETOPOSIDE [Suspect]
     Indication: GLIOMA
     Route: 042
  3. METHOTREXATE [Suspect]
     Indication: GLIOMA
     Route: 042
  4. CISPLATIN [Suspect]
     Indication: GLIOMA
     Route: 042
  5. VINCRISTINE [Suspect]
     Indication: GLIOMA
     Route: 042
  6. LEUCOVORIN [Suspect]
     Indication: GLIOMA
     Route: 042

REACTIONS (1)
  - SUBILEUS [None]
